FAERS Safety Report 7079961 (Version 2)
Quarter: 2014Q1

REPORT INFORMATION
  Report Type: Spontaneous
  Country: US (occurrence: None)
  Receive Date: 20090805
  Receipt Date: 20140206
  Transmission Date: 20141002
  Serious: Yes (Hospitalization, Other)
  Sender: FDA-Public Use
  Company Number: 2009S1006000

PATIENT
  Age: 66 Year
  Sex: Female

DRUGS (8)
  1. PHOSPHO-SODA [Suspect]
     Indication: COLONOSCOPY
     Dosage: 90 ML, 2 IN 24 HOURS, ORAL
     Dates: start: 20071211, end: 20071212
  2. ENALAPRIL HCT (HYDROCHLOROTHIAZIDE, ENALAPRIL MALEATE) [Concomitant]
  3. SIMVASTATIN (SIMVASTATIN) [Concomitant]
  4. COUMADIN (WARFARIN SODIUM) [Concomitant]
  5. PREVACID (LANSOPRAZOLE) [Concomitant]
  6. NEURONTIN (GABAPENTIN) [Concomitant]
  7. LORTAB (PARACETAMOL, HYDROCODONE BITARTRATE) [Concomitant]
  8. SOMA (CARISOPRODOL) [Concomitant]

REACTIONS (5)
  - Renal failure chronic [None]
  - Hypovolaemia [None]
  - Renal failure chronic [None]
  - Renal artery stenosis [None]
  - Acute phosphate nephropathy [None]
